FAERS Safety Report 4299080-6 (Version None)
Quarter: 2004Q1

REPORT INFORMATION
  Report Type: 
  Country: None (occurrence: None)
  Receive Date: 20040218
  Receipt Date: 20040211
  Transmission Date: 20041129
  Serious: Yes (Other)
  Sender: FDA-Public Use
  Company Number: CHPA2004US01043

PATIENT
  Age: 82 Year
  Sex: Male

DRUGS (2)
  1. BENEFIBER FIBER SUPPLEMENT SUGAR FREE (NCH)(GUAR GUM) POWDER [Suspect]
     Dates: start: 20040101
  2. INSULIN [Suspect]
     Indication: DIABETES MELLITUS
     Dosage: INJECTION NOS

REACTIONS (6)
  - BLOOD PRESSURE INCREASED [None]
  - DRUG INTERACTION [None]
  - DYSPNOEA [None]
  - GOUT [None]
  - RASH [None]
  - VISION BLURRED [None]
